FAERS Safety Report 7919357-X (Version None)
Quarter: 2011Q4

REPORT INFORMATION
  Report Type: 
  Country: None (occurrence: None)
  Receive Date: 20111115
  Receipt Date: 20111115
  Transmission Date: 20120403
  Serious: Yes (Death)
  Sender: FDA-Public Use
  Company Number: None

PATIENT
  Sex: Female
  Weight: 68.3 kg

DRUGS (2)
  1. CARBOPLATIN [Suspect]
     Dosage: 570 MG
     Dates: end: 20111028
  2. TAXOL [Suspect]
     Dosage: 120 MG
     Dates: end: 20111028

REACTIONS (7)
  - HYPERTENSION [None]
  - DIARRHOEA [None]
  - HYPOPHAGIA [None]
  - VOMITING [None]
  - INTESTINAL PERFORATION [None]
  - TACHYCARDIA [None]
  - SEPSIS [None]
